FAERS Safety Report 10239932 (Version 1)
Quarter: 2014Q2

REPORT INFORMATION
  Report Type: Spontaneous
  Country: US (occurrence: US)
  Receive Date: 20140616
  Receipt Date: 20140616
  Transmission Date: 20141212
  Serious: No
  Sender: FDA-Public Use
  Company Number: US-GILEAD-2014-0105271

PATIENT
  Age: 56 Year
  Sex: Female

DRUGS (16)
  1. LETAIRIS [Suspect]
     Indication: COR PULMONALE CHRONIC
     Dosage: 5 MG, QD
     Route: 065
     Dates: start: 20140429, end: 20140528
  2. BACTRIM [Concomitant]
     Dosage: UNK
     Route: 065
  3. HYDROCHLOROTHIAZIDE [Concomitant]
     Dosage: UNK
     Route: 065
  4. PENTOXIFYLLINE [Concomitant]
     Route: 065
  5. ADVIL                              /00109201/ [Concomitant]
     Route: 065
  6. OXYCODONE [Concomitant]
     Route: 065
  7. MULTIVITAMIN                       /07504101/ [Concomitant]
     Route: 065
  8. LYSINE [Concomitant]
     Route: 065
  9. LEVOTHYROXINE [Concomitant]
     Route: 065
  10. PROBIOTICS NOS [Concomitant]
     Route: 065
  11. MICROZIDE                          /00022001/ [Concomitant]
     Route: 065
  12. FERROUS SULFATE [Concomitant]
     Route: 065
  13. DEXILANT [Concomitant]
     Route: 065
  14. CYCLOSPORINE [Concomitant]
     Route: 065
  15. PLAVIX [Concomitant]
     Route: 065
  16. ASPIRIN [Concomitant]
     Route: 065

REACTIONS (2)
  - Disorientation [Recovered/Resolved]
  - Palpitations [Recovered/Resolved]
